FAERS Safety Report 6490151-2 (Version None)
Quarter: 2009Q4

REPORT INFORMATION
  Report Type: 
  Country: None (occurrence: None)
  Receive Date: 20091211
  Receipt Date: 20090730
  Transmission Date: 20100525
  Serious: Yes (Other)
  Sender: FDA-Public Use
  Company Number: A0799699A

PATIENT
  Age: 46 Year
  Sex: Female

DRUGS (2)
  1. FLONASE [Suspect]
     Indication: RHINITIS
     Route: 045
     Dates: start: 20090501, end: 20090701
  2. NO CONCURRENT MEDICATION [Concomitant]

REACTIONS (3)
  - AGEUSIA [None]
  - ANOSMIA [None]
  - DRUG INEFFECTIVE [None]
